FAERS Safety Report 15497354 (Version 2)
Quarter: 2018Q4

REPORT INFORMATION
  Report Type: Spontaneous
  Country: US (occurrence: US)
  Receive Date: 20181015
  Receipt Date: 20181025
  Transmission Date: 20190205
  Serious: Yes (Hospitalization, Other)
  Sender: FDA-Public Use
  Company Number: US-LUPIN PHARMACEUTICALS INC.-2018-07031

PATIENT
  Age: 36 Year
  Sex: Male

DRUGS (3)
  1. OXYCODONE AND ACETAMINOPHEN [Suspect]
     Active Substance: ACETAMINOPHEN\OXYCODONE HYDROCHLORIDE
     Indication: PRODUCT USED FOR UNKNOWN INDICATION
     Dosage: UNK (TAKING 5-15 G OF APAP DAILY)
     Route: 065
  2. CARISOPRODOL. [Concomitant]
     Active Substance: CARISOPRODOL
     Indication: PRODUCT USED FOR UNKNOWN INDICATION
     Dosage: UNK
     Route: 048
  3. HYDROCODONE AND ACETAMINOPHEN [Suspect]
     Active Substance: ACETAMINOPHEN\HYDROCODONE
     Indication: PRODUCT USED FOR UNKNOWN INDICATION
     Dosage: UNK (TAKING 5-15 G OF APAP DAILY)
     Route: 065

REACTIONS (12)
  - Encephalopathy [Unknown]
  - Stupor [Unknown]
  - Drug dependence [Unknown]
  - Acute hepatic failure [Unknown]
  - Toxicity to various agents [Unknown]
  - Hepatotoxicity [Unknown]
  - Lactic acidosis [Unknown]
  - Overdose [Unknown]
  - Liver injury [Unknown]
  - Kussmaul respiration [Unknown]
  - Asterixis [Unknown]
  - Drug abuse [Unknown]
